FAERS Safety Report 4995928-8 (Version None)
Quarter: 2006Q2

REPORT INFORMATION
  Report Type: 
  Country: None (occurrence: None)
  Receive Date: 20060508
  Receipt Date: 20051215
  Transmission Date: 20061013
  Serious: Yes (Hospitalization, Disabling)
  Sender: FDA-Public Use
  Company Number: US-MERCK-0512USA02625

PATIENT
  Age: 52 Year
  Sex: Male
  Weight: 86 kg

DRUGS (7)
  1. VIOXX [Suspect]
     Indication: ARTHRITIS
     Route: 048
     Dates: start: 20010531, end: 20020902
  2. FOLIC ACID [Concomitant]
     Route: 065
  3. VIAGRA [Concomitant]
     Indication: ERECTILE DYSFUNCTION
     Route: 065
  4. METHOTREXATE [Concomitant]
     Indication: ARTHRITIS
     Route: 065
  5. PRILOSEC [Concomitant]
     Route: 065
  6. HYDROCODONE BITARTRATE [Concomitant]
     Route: 065
  7. PREDNISONE [Concomitant]
     Indication: POLYARTHRITIS
     Route: 048

REACTIONS (11)
  - ACUTE ENDOCARDITIS [None]
  - ATRIAL SEPTAL DEFECT [None]
  - CARDIAC VALVE VEGETATION [None]
  - EMBOLIC STROKE [None]
  - HAEMATOCHEZIA [None]
  - HEMIANOPIA HETERONYMOUS [None]
  - INSOMNIA [None]
  - INTERVERTEBRAL DISC DEGENERATION [None]
  - NEPHRITIS INTERSTITIAL [None]
  - UMBILICAL HERNIA [None]
  - VISUAL FIELD DEFECT [None]
